FAERS Safety Report 24445992 (Version 4)
Quarter: 2025Q1

REPORT INFORMATION
  Report Type: Report from Study
  Country: JP (occurrence: JP)
  Receive Date: 20241016
  Receipt Date: 20250121
  Transmission Date: 20250408
  Serious: Yes (Death, Hospitalization, Other)
  Sender: GENMAB
  Company Number: JP-GENMAB-2024-01923

PATIENT
  Age: 58 Year
  Sex: Female
  Weight: 34.3 kg

DRUGS (6)
  1. EPKINLY [Suspect]
     Active Substance: EPCORITAMAB-BYSP
     Indication: Diffuse large B-cell lymphoma refractory
     Route: 058
     Dates: start: 20240206, end: 20240206
  2. EPKINLY [Suspect]
     Active Substance: EPCORITAMAB-BYSP
     Route: 058
     Dates: start: 20240213, end: 20240213
  3. EPKINLY [Suspect]
     Active Substance: EPCORITAMAB-BYSP
     Route: 058
     Dates: start: 20240221, end: 20240718
  4. PREDNISOLONE [Concomitant]
     Active Substance: PREDNISOLONE
     Indication: Prophylaxis
     Dates: start: 202402, end: 202405
  5. ANTIHISTAMINES NOS [Concomitant]
     Active Substance: ANTIHISTAMINES NOS
     Indication: Prophylaxis
     Dates: start: 202402, end: 202407
  6. UNSPECIFIED INGREDIENT [Concomitant]
     Active Substance: UNSPECIFIED INGREDIENT
     Indication: Prophylaxis
     Dates: start: 202402, end: 202407

REACTIONS (10)
  - Dehydration [Fatal]
  - Malaise [Fatal]
  - Pneumonia [Unknown]
  - Diffuse large B-cell lymphoma refractory [Fatal]
  - Femur fracture [Recovering/Resolving]
  - Bronchitis [Unknown]
  - General physical health deterioration [Unknown]
  - C-reactive protein increased [Recovered/Resolved]
  - Decreased appetite [Unknown]
  - Pyrexia [Recovered/Resolved]

NARRATIVE: CASE EVENT DATE: 20240101
